FAERS Safety Report 9676531 (Version 2)
Quarter: 2014Q2

REPORT INFORMATION
  Report Type: Spontaneous
  Country: US (occurrence: US)
  Receive Date: 20131107
  Receipt Date: 20140502
  Transmission Date: 20141212
  Serious: Yes (Hospitalization)
  Sender: FDA-Public Use
  Company Number: US-B.I. PHARMACEUTICALS,INC./RIDGEFIELD-2013-BI-34893BP

PATIENT
  Sex: Male
  Weight: 133.81 kg

DRUGS (14)
  1. PRADAXA [Suspect]
     Indication: ATRIAL FIBRILLATION
     Dosage: 300 MG
     Route: 065
     Dates: start: 20110914, end: 20120228
  2. LOVAZA [Concomitant]
     Indication: HYPERLIPIDAEMIA
     Route: 065
  3. KCL [Concomitant]
     Indication: HYPOKALAEMIA
     Route: 065
  4. DIGOXIN [Concomitant]
     Indication: ATRIAL FIBRILLATION
     Route: 065
  5. METOLAZONE [Concomitant]
     Indication: CARDIAC FAILURE CONGESTIVE
     Route: 065
  6. METOPROLOL [Concomitant]
     Indication: CARDIAC FAILURE CONGESTIVE
     Route: 065
  7. JANUVIA [Concomitant]
     Indication: DIABETES MELLITUS
     Route: 065
  8. LASIX [Concomitant]
     Indication: CARDIAC FAILURE CONGESTIVE
     Route: 065
  9. ZOCOR [Concomitant]
     Indication: HYPERLIPIDAEMIA
     Route: 065
  10. ISORBIDE [Concomitant]
     Indication: CARDIAC FAILURE CONGESTIVE
     Route: 065
  11. SPIRONOLACTONE [Concomitant]
     Indication: CARDIAC FAILURE CONGESTIVE
     Route: 065
  12. LANSOPRAZOLE [Concomitant]
     Route: 065
  13. LOSARTAN [Concomitant]
     Indication: HYPERTENSION
     Route: 065
  14. ALLOPURINOL [Concomitant]
     Indication: GOUT
     Route: 065

REACTIONS (2)
  - Lower gastrointestinal haemorrhage [Unknown]
  - Haemorrhagic anaemia [Unknown]
